FAERS Safety Report 8594031-8 (Version None)
Quarter: 2012Q3

REPORT INFORMATION
  Report Type: 
  Country: None (occurrence: None)
  Receive Date: 20120814
  Receipt Date: 20110623
  Transmission Date: 20120928
  Serious: No
  Sender: FDA-Public Use
  Company Number: US-ASTRAZENECA-2011SE37305

PATIENT
  Age: 82 Year
  Sex: Female
  Weight: 54.4 kg

DRUGS (3)
  1. ATENOLOL [Concomitant]
  2. SYNTHROID [Concomitant]
  3. SYMBICORT [Suspect]
     Indication: CHRONIC OBSTRUCTIVE PULMONARY DISEASE
     Dosage: 160/4.5 MG BID
     Route: 055
     Dates: start: 20110612

REACTIONS (6)
  - DYSPNOEA [None]
  - SPUTUM DISCOLOURED [None]
  - DRY THROAT [None]
  - DRY MOUTH [None]
  - NASOPHARYNGITIS [None]
  - NAUSEA [None]
